FAERS Safety Report 5817645-4 (Version None)
Quarter: 2008Q3

REPORT INFORMATION
  Report Type: 
  Country: None (occurrence: None)
  Receive Date: 20080722
  Receipt Date: 20080710
  Transmission Date: 20090109
  Serious: Yes (Other)
  Sender: FDA-Public Use
  Company Number: JP-ROCHE-557147

PATIENT
  Sex: Male
  Weight: 41 kg

DRUGS (6)
  1. TAMIFLU [Suspect]
     Indication: INFLUENZA
     Route: 048
     Dates: start: 20070213, end: 20070213
  2. TAMIFLU [Suspect]
     Dosage: INCREASED DOSE
     Route: 048
     Dates: start: 20070214, end: 20070216
  3. 1 CONCOMITANT DRUG [Concomitant]
     Dosage: DRUG NEOMALLERMIN (D-CHLORPHENIRAMINE MALEATE)
     Route: 048
     Dates: start: 20070213
  4. ASVERIN [Concomitant]
     Route: 048
     Dates: start: 20070213
  5. MUCOSOLVAN [Concomitant]
     Route: 048
     Dates: start: 20070213
  6. NEUZYM [Concomitant]
     Route: 048
     Dates: start: 20070213

REACTIONS (1)
  - ABNORMAL BEHAVIOUR [None]
